FAERS Safety Report 6250093-4 (Version None)
Quarter: 2009Q2

REPORT INFORMATION
  Report Type: 
  Country: None (occurrence: None)
  Receive Date: 20090626
  Receipt Date: 20090615
  Transmission Date: 20091009
  Serious: Yes (Life-Threatening, Hospitalization, Other)
  Sender: FDA-Public Use
  Company Number: 2009AP002118

PATIENT
  Age: 28 Year
  Sex: Male

DRUGS (5)
  1. VALPROIC ACID SYRUP [Suspect]
     Indication: SCHIZOPHRENIA
     Dosage: 1000 MG;HS
  2. BENZATROPINE [Concomitant]
  3. FLUOXETINE HCL [Concomitant]
  4. ZIPRASIDONE HCL [Concomitant]
  5. NALOXONE [Concomitant]

REACTIONS (10)
  - BLOOD BICARBONATE DECREASED [None]
  - DEPRESSED LEVEL OF CONSCIOUSNESS [None]
  - DRUG LEVEL ABOVE THERAPEUTIC [None]
  - DRUG TOXICITY [None]
  - ENCEPHALOPATHY [None]
  - FACIAL BONES FRACTURE [None]
  - INTENTIONAL OVERDOSE [None]
  - MENTAL STATUS CHANGES [None]
  - PO2 DECREASED [None]
  - SUICIDE ATTEMPT [None]
